FAERS Safety Report 25507989 (Version 1)
Quarter: 2025Q3

REPORT INFORMATION
  Report Type: Spontaneous
  Country: US (occurrence: US)
  Receive Date: 20250703
  Receipt Date: 20250703
  Transmission Date: 20251020
  Serious: Yes (Hospitalization, Other)
  Sender: VELOXIS PHARMACEUTICALS
  Company Number: US-VELOXIS PHARMACEUTICALS, INC.-2025-VEL-00333

PATIENT
  Age: 30 Year
  Sex: Male

DRUGS (3)
  1. ENVARSUS XR [Suspect]
     Active Substance: TACROLIMUS
     Indication: Renal transplant
     Dates: start: 20250612, end: 20250615
  2. ENVARSUS XR [Suspect]
     Active Substance: TACROLIMUS
  3. CARBAMAZEPINE [Suspect]
     Active Substance: CARBAMAZEPINE
     Indication: Enzyme induction

REACTIONS (7)
  - Immunosuppressant drug level increased [Unknown]
  - Renal cortical necrosis [Unknown]
  - Enzyme induction [Unknown]
  - Immunosuppressant drug level decreased [Unknown]
  - Blood creatinine increased [Unknown]
  - Renal impairment [Unknown]
  - Toxicity to various agents [Unknown]

NARRATIVE: CASE EVENT DATE: 20250601
